FAERS Safety Report 8899916 (Version 1)
Quarter: 2012Q4

REPORT INFORMATION
  Report Type: 
  Country: US (occurrence: US)
  Receive Date: 20121109
  Receipt Date: 20121109
  Transmission Date: 20130627
  Serious: Yes (Other)
  Sender: FDA-Public Use
  Company Number: PHHY2012US102621

PATIENT
  Age: 80 Year
  Sex: Male

DRUGS (3)
  1. KETOPROFEN [Suspect]
     Indication: OSTEOARTHRITIS
  2. AMPICILLIN [Concomitant]
     Indication: ENDOCARDITIS
     Route: 042
  3. GENTAMICIN [Concomitant]
     Indication: ENDOCARDITIS
     Route: 042

REACTIONS (4)
  - Pancreatitis acute [Recovered/Resolved]
  - Asthenia [Recovered/Resolved]
  - Decreased appetite [Recovered/Resolved]
  - Abdominal tenderness [Recovered/Resolved]
